FAERS Safety Report 7759105-X (Version None)
Quarter: 2011Q3

REPORT INFORMATION
  Report Type: 
  Country: None (occurrence: None)
  Receive Date: 20110919
  Receipt Date: 20110915
  Transmission Date: 20111222
  Serious: Yes (Death)
  Sender: FDA-Public Use
  Company Number: PHBS2006DK13029

PATIENT
  Sex: Male

DRUGS (5)
  1. ESCITALOPRAM [Concomitant]
     Route: 065
     Dates: start: 20051125
  2. CLOZAPINE [Suspect]
     Indication: MENTAL DISORDER
     Dosage: 200 MG, DAILY
     Route: 048
     Dates: start: 20060530, end: 20060725
  3. LITHIUM CARBONATE [Concomitant]
     Route: 065
     Dates: start: 19960914
  4. MIRTAZAPINE [Concomitant]
     Route: 065
     Dates: start: 20050523
  5. CLOZAPINE [Suspect]
     Dosage: 100 MG, DAILY
     Route: 048
     Dates: end: 20060725

REACTIONS (4)
  - PNEUMONIA [None]
  - SEPSIS [None]
  - AGRANULOCYTOSIS [None]
  - SEDATION [None]
